FAERS Safety Report 6203539-1 (Version None)
Quarter: 2009Q2

REPORT INFORMATION
  Report Type: 
  Country: None (occurrence: None)
  Receive Date: 20090522
  Receipt Date: 20090522
  Transmission Date: 20091009
  Serious: Yes (Hospitalization, Other)
  Sender: FDA-Public Use
  Company Number: None

PATIENT
  Age: 42 Year
  Sex: Female
  Weight: 52.1637 kg

DRUGS (2)
  1. ULTRAM [Suspect]
     Indication: BACK PAIN
     Dosage: 50 MG TID PO ONLY 2 DOSES.
     Route: 048
     Dates: start: 20020915, end: 20020915
  2. ULTRAM [Suspect]
     Indication: MUSCLE SPASMS
     Dosage: 50 MG TID PO ONLY 2 DOSES.
     Route: 048
     Dates: start: 20020915, end: 20020915

REACTIONS (5)
  - CONFUSIONAL STATE [None]
  - CRYING [None]
  - DISORIENTATION [None]
  - GRAND MAL CONVULSION [None]
  - NEPHROLITHIASIS [None]
